FAERS Safety Report 6191673-4 (Version None)
Quarter: 2009Q2

REPORT INFORMATION
  Report Type: 
  Country: None (occurrence: None)
  Receive Date: 20090515
  Receipt Date: 20090511
  Transmission Date: 20091009
  Serious: Yes (Other)
  Sender: FDA-Public Use
  Company Number: PHHY2009IT18110

PATIENT
  Age: 71 Year
  Sex: Female

DRUGS (1)
  1. ZOMETA [Suspect]
     Indication: MULTIPLE MYELOMA
     Dosage: UNK
     Dates: start: 20040401

REACTIONS (6)
  - DEBRIDEMENT [None]
  - FISTULA [None]
  - OSTEONECROSIS [None]
  - PAIN [None]
  - TOOTH ABSCESS [None]
  - TOOTH EXTRACTION [None]
